FAERS Safety Report 4797416-0 (Version None)
Quarter: 2005Q4

REPORT INFORMATION
  Report Type: 
  Country: None (occurrence: None)
  Receive Date: 20051013
  Receipt Date: 20051006
  Transmission Date: 20060501
  Serious: Yes (Hospitalization, Other)
  Sender: FDA-Public Use
  Company Number: DE-BRISTOL-MYERS SQUIBB COMPANY-13137740

PATIENT
  Age: 53 Year
  Sex: Male
  Weight: 74 kg

DRUGS (12)
  1. ZERIT [Suspect]
     Indication: HIV INFECTION
     Dosage: STARTED 1999, STARTED 18-MAY-2000, STARTED 02-JUN-2001, RESTARTED 01-APR-2003, RESTARTED 14-AUG-2004
     Dates: start: 19990101
  2. SUSTIVA [Suspect]
     Indication: HIV INFECTION
     Dates: start: 20000518, end: 20010602
  3. VIDEX [Suspect]
     Indication: HIV INFECTION
     Dosage: RESTARTED 01-APR-2003,
     Dates: start: 19990101, end: 20040814
  4. VIRAMUNE [Suspect]
     Indication: HIV INFECTION
     Dates: start: 19990101, end: 20000518
  5. CRIXIVAN [Suspect]
     Indication: HIV INFECTION
     Dates: start: 19990101, end: 20000518
  6. ABACAVIR [Suspect]
     Indication: HIV INFECTION
     Dates: start: 20000518, end: 20010602
  7. EPIVIR [Suspect]
     Indication: HIV INFECTION
     Dosage: RESTARTED 02-JUN-2001, RESTARTED 01-APR-2003, RESTARTED 14-AUG-2004
     Dates: start: 20000518
  8. FORTOVASE [Suspect]
     Indication: HIV INFECTION
     Dosage: WITGHDRAWN 02-JUN-2001, RESTARTED 01-APR-2003
     Dates: start: 20000518, end: 20030814
  9. NORVIR [Suspect]
     Indication: HIV INFECTION
     Dosage: RESTARTED 01-APR-2003, AND AGAIN RESTARTED ON 14-AUG-2004
     Dates: start: 20000518
  10. AGENERASE [Suspect]
     Indication: HIV INFECTION
     Dates: start: 20040814
  11. TIPRANAVIR [Suspect]
     Indication: HIV INFECTION
     Dates: start: 20040814
  12. VIREAD [Suspect]
     Indication: HIV INFECTION
     Dates: start: 20040814

REACTIONS (4)
  - FUNGAL INFECTION [None]
  - PYREXIA [None]
  - RASH PUSTULAR [None]
  - SYPHILIS [None]
